FAERS Safety Report 5326881-5 (Version None)
Quarter: 2007Q2

REPORT INFORMATION
  Report Type: 
  Country: None (occurrence: None)
  Receive Date: 20070511
  Receipt Date: 20070505
  Transmission Date: 20071010
  Serious: Yes (Hospitalization)
  Sender: FDA-Public Use
  Company Number: 2007SP008593

PATIENT
  Sex: Male
  Weight: 61.33 kg

DRUGS (2)
  1. PEG-INTRON (PEGINTERFERON ALAF-2B) (PEGINTERFERON ALFA-2B) [Suspect]
     Indication: HEPATITIS C
     Dosage: 1.5 MCG/KG;QW;SC
     Route: 058
     Dates: start: 20070501
  2. RIBAVIRIN [Suspect]
     Indication: HEPATITIS C
     Dosage: 800 MG;QD;PO
     Route: 048
     Dates: start: 20070501

REACTIONS (2)
  - GASTRITIS [None]
  - JAUNDICE [None]
